FAERS Safety Report 4771347-4 (Version None)
Quarter: 2005Q3

REPORT INFORMATION
  Report Type: 
  Country: None (occurrence: None)
  Receive Date: 20050914
  Receipt Date: 20050825
  Transmission Date: 20060218
  Serious: Yes (Hospitalization)
  Sender: FDA-Public Use
  Company Number: USA050187241

PATIENT
  Age: 87 Year
  Sex: Male
  Weight: 75 kg

DRUGS (11)
  1. FORTEO [Suspect]
     Indication: OSTEOPOROSIS
     Dosage: 20 UG/1 IN THE MORNING
     Dates: start: 20041201
  2. PROCRIT [Suspect]
  3. LOTREL [Concomitant]
  4. COREG [Concomitant]
  5. ADIPEX [Concomitant]
  6. BUSPAR [Concomitant]
  7. HYDROCHLOROTHIAZIDE [Concomitant]
  8. PROSCAR [Concomitant]
  9. TAMSULOSIN [Concomitant]
  10. MAGNESIUM [Concomitant]
  11. CALCIUM GLUCONATE [Concomitant]

REACTIONS (32)
  - ACNE [None]
  - ANXIETY [None]
  - BACK PAIN [None]
  - BLOOD ALKALINE PHOSPHATASE INCREASED [None]
  - BLOOD GLUCOSE INCREASED [None]
  - BLOOD PRESSURE SYSTOLIC INCREASED [None]
  - BUTTOCK PAIN [None]
  - CONDITION AGGRAVATED [None]
  - CONFUSIONAL STATE [None]
  - CONSTIPATION [None]
  - DIFFICULTY IN WALKING [None]
  - DIZZINESS [None]
  - EYE INFECTION [None]
  - GLAUCOMA [None]
  - HAEMOGLOBIN DECREASED [None]
  - HERNIA [None]
  - INCORRECT DOSE ADMINISTERED [None]
  - INJECTION SITE DISCOLOURATION [None]
  - INJECTION SITE ERYTHEMA [None]
  - INJECTION SITE HAEMORRHAGE [None]
  - INJECTION SITE INDURATION [None]
  - INJECTION SITE PAIN [None]
  - INJECTION SITE REACTION [None]
  - JOINT SWELLING [None]
  - MUSCLE SPASMS [None]
  - OSTEITIS DEFORMANS [None]
  - PAIN IN EXTREMITY [None]
  - PHARMACEUTICAL PRODUCT COMPLAINT [None]
  - PURPURA [None]
  - SCAB [None]
  - SPINAL COLUMN STENOSIS [None]
  - VIRAL INFECTION [None]
